FAERS Safety Report 7291525-2 (Version None)
Quarter: 2011Q1

REPORT INFORMATION
  Report Type: 
  Country: None (occurrence: None)
  Receive Date: 20110214
  Receipt Date: 20110131
  Transmission Date: 20110831
  Serious: Yes (Hospitalization)
  Sender: FDA-Public Use
  Company Number: AU-CELGENEUS-008-20785-11011578

PATIENT
  Sex: Female
  Weight: 63 kg

DRUGS (8)
  1. NEXIUM [Concomitant]
     Route: 065
     Dates: start: 20100629
  2. MELPHALAN [Concomitant]
     Route: 065
  3. MS CONTIN [Concomitant]
     Indication: PAIN
     Route: 065
     Dates: start: 20100626
  4. FOSANIC [Concomitant]
     Indication: OSTEOPOROSIS
     Route: 065
     Dates: start: 20070101
  5. THALOMID [Suspect]
     Indication: MULTIPLE MYELOMA
     Route: 048
     Dates: start: 20100716, end: 20100817
  6. CRESTOR [Concomitant]
     Route: 065
     Dates: start: 20050101
  7. OSTELIN [Concomitant]
     Indication: VITAMIN D DEFICIENCY
     Route: 065
     Dates: start: 20100629
  8. PREDNISONE [Concomitant]
     Route: 065

REACTIONS (1)
  - HEPATOTOXICITY [None]
